FAERS Safety Report 8522580-7 (Version None)
Quarter: 2012Q3

REPORT INFORMATION
  Report Type: 
  Country: None (occurrence: None)
  Receive Date: 20120719
  Receipt Date: 20120712
  Transmission Date: 20120928
  Serious: Yes (Disabling)
  Sender: FDA-Public Use
  Company Number: GR-JNJFOC-20120707233

PATIENT
  Age: 83 Year
  Sex: Female

DRUGS (4)
  1. XARELTO [Suspect]
     Indication: ORTHOPEDIC PROCEDURE
     Route: 048
     Dates: start: 20120623, end: 20120625
  2. XARELTO [Suspect]
     Indication: THROMBOSIS PROPHYLAXIS
     Route: 048
     Dates: start: 20120623, end: 20120625
  3. NEXIUM [Concomitant]
     Indication: GASTRITIS
     Route: 048
  4. VASCASE [Concomitant]
     Indication: HYPERTENSION
     Route: 048

REACTIONS (1)
  - PULMONARY EMBOLISM [None]
